FAERS Safety Report 6346542-3 (Version None)
Quarter: 2009Q3

REPORT INFORMATION
  Report Type: 
  Country: None (occurrence: None)
  Receive Date: 20090909
  Receipt Date: 20090831
  Transmission Date: 20100115
  Serious: Yes (Hospitalization)
  Sender: FDA-Public Use
  Company Number: SE-B.I. PHARMACEUTICALS,INC./RIDGEFIELD-2009-SW-00211SW

PATIENT
  Age: 65 Year
  Sex: Female

DRUGS (12)
  1. SIFROL TAB 0.35 MG [Suspect]
     Indication: RESTLESS LEGS SYNDROME
     Dosage: 0.35 MG
     Route: 048
     Dates: end: 20090718
  2. LYRICA [Suspect]
     Indication: RESTLESS LEGS SYNDROME
     Dosage: 300 MG
     Route: 048
     Dates: end: 20090718
  3. VAGIFEM [Concomitant]
  4. AERIUS [Concomitant]
     Dosage: ORAL LYOPHILISATE
  5. SYMBICORT [Concomitant]
     Dosage: 160MCG/4.5MI
     Route: 055
  6. ARTROX [Concomitant]
     Dosage: FILM-COATED TABLET
  7. SIMVASTATIN [Concomitant]
  8. LEVOTHYROXINE SODIUM [Concomitant]
  9. LASIX [Concomitant]
  10. TROMBYL [Concomitant]
     Route: 048
  11. ATENOLOL [Concomitant]
  12. TRIOBE [Concomitant]

REACTIONS (3)
  - MUSCLE CONTRACTIONS INVOLUNTARY [None]
  - MUSCLE SPASMS [None]
  - TREMOR [None]
